FAERS Safety Report 9332959 (Version 1)
Quarter: 2013Q2

REPORT INFORMATION
  Report Type: Spontaneous
  Country: US (occurrence: US)
  Receive Date: 20130606
  Receipt Date: 20130606
  Transmission Date: 20140414
  Serious: Yes (Other)
  Sender: FDA-Public Use
  Company Number: US-ASTELLAS-2013US005058

PATIENT
  Age: 69 Year
  Sex: Female
  Weight: 95 kg

DRUGS (9)
  1. VESICARE [Suspect]
     Indication: BLADDER DISORDER
     Dosage: 5 MG, UID/QD
     Route: 048
  2. VESICARE [Suspect]
     Indication: STRESS URINARY INCONTINENCE
  3. VESICARE [Suspect]
     Indication: POLYURIA
  4. VESICARE [Suspect]
     Indication: URGE INCONTINENCE
  5. HYDROCHLOROTHIAZIDE [Concomitant]
     Indication: PRODUCT USED FOR UNKNOWN INDICATION
     Dosage: UNK
     Route: 065
  6. FISH OIL [Concomitant]
     Indication: PRODUCT USED FOR UNKNOWN INDICATION
     Dosage: UNK
     Route: 065
  7. GLUCOSAMINE [Concomitant]
     Indication: PRODUCT USED FOR UNKNOWN INDICATION
     Dosage: UNK
     Route: 065
  8. NORVASC [Concomitant]
     Indication: PRODUCT USED FOR UNKNOWN INDICATION
     Dosage: 5 MG, UNKNOWN/D
     Route: 065
  9. PAXIL [Concomitant]
     Indication: PRODUCT USED FOR UNKNOWN INDICATION
     Dosage: 10 MG, UNKNOWN/D
     Route: 065

REACTIONS (6)
  - Off label use [Unknown]
  - Type 2 diabetes mellitus [Unknown]
  - Osteoarthritis [Unknown]
  - Hypertension [Unknown]
  - Atrophic vulvovaginitis [Unknown]
  - Pollakiuria [Unknown]
